FAERS Safety Report 23535080 (Version 1)
Quarter: 2024Q1

REPORT INFORMATION
  Report Type: Report from Study
  Country: GB (occurrence: GB)
  Receive Date: 20240217
  Receipt Date: 20240217
  Transmission Date: 20240410
  Serious: Yes (Other)
  Sender: FDA-Public Use
  Company Number: GB-SANDOZ-SDZ2023GB073362

PATIENT
  Sex: Female

DRUGS (2)
  1. HYRIMOZ [Suspect]
     Active Substance: ADALIMUMAB-ADAZ
     Dosage: 40 MG, EOW
     Route: 058
  2. HYRIMOZ [Suspect]
     Active Substance: ADALIMUMAB-ADAZ
     Indication: Crohn^s disease
     Dosage: 40 MG, Q2W
     Route: 058
     Dates: start: 20231116

REACTIONS (7)
  - Lower respiratory tract infection [Unknown]
  - Blood iron decreased [Unknown]
  - Vitamin D decreased [Unknown]
  - Blood folate decreased [Unknown]
  - Viral infection [Unknown]
  - Migraine [Unknown]
  - Nausea [Unknown]
